FAERS Safety Report 23963155 (Version 1)
Quarter: 2024Q2

REPORT INFORMATION
  Report Type: Report from Study
  Country: CL (occurrence: CL)
  Receive Date: 20240611
  Receipt Date: 20240611
  Transmission Date: 20240716
  Serious: Yes (Hospitalization)
  Sender: FDA-Public Use
  Company Number: CL-JNJFOC-20240623692

PATIENT
  Age: 58 Year
  Sex: Female

DRUGS (1)
  1. SIMPONI [Suspect]
     Active Substance: GOLIMUMAB
     Indication: Rheumatoid arthritis
     Dosage: LAST ADHERENCE RECORDED 05-MAY-2024
     Route: 058
     Dates: start: 20230904

REACTIONS (1)
  - Hysterectomy [Unknown]

NARRATIVE: CASE EVENT DATE: 20240530
